FAERS Safety Report 16332336 (Version 2)
Quarter: 2019Q4

REPORT INFORMATION
  Report Type: Spontaneous
  Country: IT (occurrence: IT)
  Receive Date: 20190520
  Receipt Date: 20191227
  Transmission Date: 20200122
  Serious: Yes (Hospitalization)
  Sender: FDA-Public Use
  Company Number: IT-SAMSUNG BIOEPIS-SB-2019-11548

PATIENT
  Age: 48 Year
  Sex: Male

DRUGS (2)
  1. INFLIXIMAB [Suspect]
     Active Substance: INFLIXIMAB
     Dosage: UNKNOWN, DOSAGE FORM:  LYOPHILIZED POWDER
     Route: 042
     Dates: start: 201802
  2. INFLIXIMAB [Suspect]
     Active Substance: INFLIXIMAB
     Indication: CROHN^S DISEASE
     Dosage: UNKNOWN,DOSAGE FORM:  LYOPHILIZED POWDER
     Route: 042
     Dates: start: 201712

REACTIONS (7)
  - Pneumonia staphylococcal [Recovering/Resolving]
  - Bronchopulmonary aspergillosis [Recovering/Resolving]
  - Respiratory failure [Recovering/Resolving]
  - Hypokalaemia [Recovered/Resolved]
  - Pulmonary tuberculosis [Recovering/Resolving]
  - Atrial fibrillation [Recovered/Resolved]
  - Pneumonia klebsiella [Recovering/Resolving]

NARRATIVE: CASE EVENT DATE: 201803
